FAERS Safety Report 8971094 (Version 1)
Quarter: 2012Q4

REPORT INFORMATION
  Report Type: 
  Country: CA (occurrence: CA)
  Receive Date: 20121218
  Receipt Date: 20121218
  Transmission Date: 20130627
  Serious: Yes (Other)
  Sender: FDA-Public Use
  Company Number: CA-AMGEN-CANSP2012080689

PATIENT
  Age: 63 Year
  Sex: Female
  Weight: 41 kg

DRUGS (3)
  1. NPLATE [Suspect]
     Indication: PRODUCT USED FOR UNKNOWN INDICATION
     Dosage: UNK
  2. PREDNISONE [Concomitant]
     Dosage: UNK
  3. CORTICOSTEROIDS [Concomitant]
     Dosage: UNK

REACTIONS (2)
  - Platelet count decreased [Unknown]
  - Therapeutic response decreased [Unknown]
